FAERS Safety Report 5707203-4 (Version None)
Quarter: 2008Q2

REPORT INFORMATION
  Report Type: 
  Country: None (occurrence: None)
  Receive Date: 20080416
  Receipt Date: 20080401
  Transmission Date: 20081010
  Serious: No
  Sender: FDA-Public Use
  Company Number: US-AVENTIS-200811040US

PATIENT
  Sex: Male

DRUGS (2)
  1. ARAVA [Suspect]
  2. ENBREL [Concomitant]
     Dosage: DOSE: UNK

REACTIONS (1)
  - DRUG EXPOSURE DURING PREGNANCY [None]
